FAERS Safety Report 6867348-2 (Version None)
Quarter: 2010Q3

REPORT INFORMATION
  Report Type: 
  Country: None (occurrence: None)
  Receive Date: 20100722
  Receipt Date: 20100719
  Transmission Date: 20110219
  Serious: Yes (Other)
  Sender: FDA-Public Use
  Company Number: US-MERCK-0805USA04361

PATIENT
  Age: 68 Year
  Sex: Female

DRUGS (6)
  1. FOSAMAX [Suspect]
     Indication: PAIN
     Route: 048
     Dates: start: 19970130
  2. FOSAMAX [Suspect]
     Route: 048
     Dates: start: 19970101
  3. FOSAMAX [Suspect]
     Route: 048
     Dates: start: 19970130
  4. FOSAMAX [Suspect]
     Route: 048
     Dates: start: 19970101
  5. [THERAPY UNSPECIFIED] [Concomitant]
     Indication: HYPERTENSION
     Route: 065
     Dates: start: 19970101
  6. [THERAPY UNSPECIFIED] [Concomitant]
     Indication: BLOOD CHOLESTEROL DECREASED
     Route: 065
     Dates: start: 20010101

REACTIONS (36)
  - ANGIOPATHY [None]
  - ARTERIAL DISORDER [None]
  - ASTHMA [None]
  - BALANCE DISORDER [None]
  - BLISTER [None]
  - BLOOD CHOLESTEROL INCREASED [None]
  - BONE DENSITY DECREASED [None]
  - CARDIAC MURMUR [None]
  - CATARACT [None]
  - CONJUNCTIVITIS ALLERGIC [None]
  - CYST [None]
  - DENTAL CARIES [None]
  - DIZZINESS [None]
  - DRUG HYPERSENSITIVITY [None]
  - EXOSTOSIS [None]
  - EYELID DISORDER [None]
  - GASTROOESOPHAGEAL REFLUX DISEASE [None]
  - GINGIVAL DISORDER [None]
  - INFECTION [None]
  - LARYNGITIS [None]
  - MEMORY IMPAIRMENT [None]
  - MIGRAINE [None]
  - NASAL SEPTUM DEVIATION [None]
  - OSTEONECROSIS [None]
  - OSTEONECROSIS OF JAW [None]
  - PAIN [None]
  - PERIODONTAL DISEASE [None]
  - RASH [None]
  - SINUSITIS [None]
  - SKIN LESION [None]
  - SWELLING [None]
  - TOOTH LOSS [None]
  - TRAUMATIC ULCER [None]
  - TRISMUS [None]
  - VESTIBULAR DISORDER [None]
  - VISUAL IMPAIRMENT [None]
